FAERS Safety Report 9826255 (Version 1)
Quarter: 2013Q4

REPORT INFORMATION
  Report Type: Spontaneous
  Country: GB (occurrence: None)
  Receive Date: 20131112
  Receipt Date: 20131112
  Transmission Date: 20140711
  Serious: Yes (Other)
  Sender: FDA-Public Use
  Company Number: 2012-01833

PATIENT
  Age: 50 Year
  Sex: Female
  Weight: 87.2 kg

DRUGS (4)
  1. LISINOPRIL [Suspect]
     Dates: start: 20121008
  2. CLOTRIMAZOLE [Concomitant]
  3. PHENOXYMETHYLPENICILLIN [Concomitant]
  4. CITRIC ACID [Concomitant]

REACTIONS (1)
  - Cough [None]
